FAERS Safety Report 5485836-0 (Version None)
Quarter: 2007Q4

REPORT INFORMATION
  Report Type: 
  Country: None (occurrence: None)
  Receive Date: 20071015
  Receipt Date: 20071003
  Transmission Date: 20080405
  Serious: Yes (Hospitalization, Other)
  Sender: FDA-Public Use
  Company Number: US-PURDUE-USA_2007_0029474

PATIENT
  Sex: Male

DRUGS (8)
  1. OXYCONTIN [Suspect]
     Indication: SPINAL CORD INJURY
     Dosage: 80 MG, TID
  2. RELAFEN [Concomitant]
     Indication: ARTHRITIS
     Dosage: UNK, UNK
     Dates: end: 20070101
  3. BUPROPION HCL [Concomitant]
     Indication: PAIN
  4. LORTAB [Concomitant]
     Indication: PAIN
  5. ELMIRON [Concomitant]
     Indication: BLADDER DISORDER
  6. COZAAR [Concomitant]
     Indication: BLOOD PRESSURE
  7. LEXAPRO [Concomitant]
     Indication: PAIN
  8. VIOXX [Concomitant]
     Indication: ARTHRITIS

REACTIONS (12)
  - BALANCE DISORDER [None]
  - CARDIOMEGALY [None]
  - CONSTIPATION [None]
  - DRUG EFFECT DECREASED [None]
  - DRUG WITHDRAWAL SYNDROME [None]
  - FALL [None]
  - GASTROINTESTINAL DISORDER [None]
  - GASTROINTESTINAL OBSTRUCTION [None]
  - NEUROMYOPATHY [None]
  - OEDEMA PERIPHERAL [None]
  - PERICARDIAL EFFUSION [None]
  - SKIN DISORDER [None]
